FAERS Safety Report 17294550 (Version 1)
Quarter: 2020Q1

REPORT INFORMATION
  Report Type: Spontaneous
  Country: US (occurrence: US)
  Receive Date: 20200121
  Receipt Date: 20200121
  Transmission Date: 20200409
  Serious: Yes (Other)
  Sender: FDA-Public Use
  Company Number: US-TEVA-2020-US-1171121

PATIENT
  Age: 55 Year
  Sex: Female

DRUGS (2)
  1. TAMOXIFEN [Suspect]
     Active Substance: TAMOXIFEN
     Indication: METASTASES TO LUNG
  2. TAMOXIFEN [Suspect]
     Active Substance: TAMOXIFEN
     Indication: LEIOMYOMA
     Route: 065

REACTIONS (1)
  - Therapy non-responder [Unknown]
